FAERS Safety Report 7537758-9 (Version None)
Quarter: 2011Q2

REPORT INFORMATION
  Report Type: 
  Country: None (occurrence: None)
  Receive Date: 20110609
  Receipt Date: 20110603
  Transmission Date: 20111010
  Serious: Yes (Life-Threatening, Hospitalization)
  Sender: FDA-Public Use
  Company Number: DE-BAYER-2011-043301

PATIENT
  Sex: Male

DRUGS (1)
  1. ULTRAVIST 150 [Suspect]
     Indication: PRODUCT USED FOR UNKNOWN INDICATION
     Dosage: 100 ML, ONCE
     Route: 042

REACTIONS (6)
  - ABDOMINAL DISCOMFORT [None]
  - GASTRIC DISORDER [None]
  - DRY THROAT [None]
  - COUGH [None]
  - DYSPNOEA [None]
  - DIZZINESS [None]
